FAERS Safety Report 17733782 (Version 2)
Quarter: 2020Q2

REPORT INFORMATION
  Report Type: Spontaneous
  Country: PT (occurrence: PT)
  Receive Date: 20200501
  Receipt Date: 20200629
  Transmission Date: 20200714
  Serious: Yes (Hospitalization, Other)
  Sender: FDA-Public Use
  Company Number: PT-ACCORD-180105

PATIENT
  Age: 70 Year
  Sex: Female

DRUGS (3)
  1. CARBIDOPA/LEVODOPA [Suspect]
     Active Substance: CARBIDOPA\LEVODOPA
     Indication: PARKINSON^S DISEASE
  2. ROPINIROLE/ROPINIROLE HYDROCHLORIDE [Suspect]
     Active Substance: ROPINIROLE HYDROCHLORIDE
     Indication: PARKINSON^S DISEASE
  3. CARBIDOPA/LEVODOPA [Suspect]
     Active Substance: CARBIDOPA\LEVODOPA
     Indication: PARKINSON^S DISEASE
     Dosage: STRENGTH 250 MG / 25 MG, EXCESSIVE DOSES OF CARBIDOPA/L-DOPA WHICH HE MIXED IN A GLASS OF WATER

REACTIONS (5)
  - Intentional overdose [Unknown]
  - Chorea [Unknown]
  - Incorrect dose administered [Unknown]
  - Dopamine dysregulation syndrome [Unknown]
  - Factitious disorder [Unknown]
